FAERS Safety Report 9515070 (Version 1)
Quarter: 2013Q3

REPORT INFORMATION
  Report Type: Spontaneous
  Country: US (occurrence: None)
  Receive Date: 20130909
  Receipt Date: 20130909
  Transmission Date: 20140515
  Serious: Yes (Other)
  Sender: FDA-Public Use
  Company Number: 2013SA088452

PATIENT
  Sex: Female

DRUGS (1)
  1. CORTIZONE [Suspect]
     Indication: PRURITUS
     Dosage: ; UNKNOWN ; UNKNOWN
     Dates: start: 20130825

REACTIONS (2)
  - Thermal burn [None]
  - Drug ineffective [None]
